FAERS Safety Report 15904258 (Version 2)
Quarter: 2019Q1

REPORT INFORMATION
  Report Type: Spontaneous
  Country: US (occurrence: US)
  Receive Date: 20190204
  Receipt Date: 20190207
  Transmission Date: 20190417
  Serious: Yes (Death, Other)
  Sender: FDA-Public Use
  Company Number: US-AUROBINDO-AUR-APL-2018-058431

PATIENT
  Age: 76 Year
  Sex: Female
  Weight: 63 kg

DRUGS (4)
  1. CHOLESTEROL [Concomitant]
     Active Substance: CHOLESTEROL
     Indication: PRODUCT USED FOR UNKNOWN INDICATION
  2. BABY ASPIRIN [Concomitant]
     Active Substance: ASPIRIN
     Indication: PRODUCT USED FOR UNKNOWN INDICATION
  3. SIMVASTATIN. [Concomitant]
     Active Substance: SIMVASTATIN
     Indication: PRODUCT USED FOR UNKNOWN INDICATION
  4. MIRTAZAPINE TABLETS 15 MG [Suspect]
     Active Substance: MIRTAZAPINE
     Indication: WEIGHT INCREASED
     Dosage: HALF A PILL AT BED TIME
     Route: 065
     Dates: start: 20181114

REACTIONS (7)
  - Muscle twitching [Unknown]
  - Death [Fatal]
  - Decreased appetite [Unknown]
  - Vomiting [Unknown]
  - Nausea [Unknown]
  - Fatigue [Unknown]
  - Somnolence [Unknown]
